FAERS Safety Report 7506897-0 (Version None)
Quarter: 2011Q2

REPORT INFORMATION
  Report Type: 
  Country: None (occurrence: None)
  Receive Date: 20110526
  Receipt Date: 20110523
  Transmission Date: 20111010
  Serious: Yes (Disabling, Congenital Anomaly, Other)
  Sender: FDA-Public Use
  Company Number: DE-ABBOTT-11P-062-0727887-00

PATIENT
  Sex: Male

DRUGS (1)
  1. VALPROATE SODIUM [Suspect]
     Indication: DRUG EXPOSURE DURING PREGNANCY
     Route: 064

REACTIONS (22)
  - DRUG EXPOSURE DURING PREGNANCY [None]
  - PERSONALITY DISORDER [None]
  - CEREBRAL DISORDER [None]
  - CONGENITAL CHOROID PLEXUS CYST [None]
  - PYELOCALIECTASIS [None]
  - CONGENITAL FOOT MALFORMATION [None]
  - FEEDING DISORDER NEONATAL [None]
  - DYSMORPHISM [None]
  - STRABISMUS [None]
  - ACQUIRED PHIMOSIS [None]
  - CONGENITAL NOSE MALFORMATION [None]
  - PREMATURE BABY [None]
  - BREECH PRESENTATION [None]
  - RESPIRATORY DISTRESS [None]
  - PHIMOSIS [None]
  - LOW SET EARS [None]
  - CONGENITAL HAND MALFORMATION [None]
  - DYSKINESIA [None]
  - AGITATION NEONATAL [None]
  - CONGENITAL TRICUSPID VALVE INCOMPETENCE [None]
  - TREMOR [None]
  - REFLEXES ABNORMAL [None]
